FAERS Safety Report 23732153 (Version 1)
Quarter: 2024Q2

REPORT INFORMATION
  Report Type: Spontaneous
  Country: CN (occurrence: CN)
  Receive Date: 20240411
  Receipt Date: 20240411
  Transmission Date: 20240716
  Serious: Yes (Life-Threatening, Hospitalization, Disabling)
  Sender: FDA-Public Use
  Company Number: CN-Eisai-EC-2024-163526

PATIENT
  Age: 69 Year
  Sex: Male

DRUGS (1)
  1. LENVATINIB [Suspect]
     Active Substance: LENVATINIB
     Indication: Hepatic cancer
     Route: 048
     Dates: start: 20220301, end: 20240205

REACTIONS (2)
  - Cerebral infarction [Recovering/Resolving]
  - Coronary artery embolism [Recovering/Resolving]

NARRATIVE: CASE EVENT DATE: 20240205
